FAERS Safety Report 4408767-3 (Version None)
Quarter: 2004Q3

REPORT INFORMATION
  Report Type: 
  Country: None (occurrence: None)
  Receive Date: 20040727
  Receipt Date: 20040521
  Transmission Date: 20050211
  Serious: Yes (Life-Threatening, Other)
  Sender: FDA-Public Use
  Company Number: US-BRISTOL-MYERS SQUIBB COMPANY-12593950

PATIENT
  Age: 62 Year
  Sex: Female

DRUGS (1)
  1. CHOLESTYRAMINE [Suspect]
     Indication: LOOSE STOOLS
     Route: 048

REACTIONS (2)
  - CHOKING [None]
  - SENSATION OF FOREIGN BODY [None]
